FAERS Safety Report 10877825 (Version 1)
Quarter: 2015Q1

REPORT INFORMATION
  Report Type: Spontaneous
  Country: IN (occurrence: None)
  Receive Date: 20150224
  Receipt Date: 20150224
  Transmission Date: 20150721
  Serious: Yes (Hospitalization)
  Sender: FDA-Public Use
  Company Number: IN-2015VAL000143

PATIENT
  Age: 07 Year
  Sex: Female

DRUGS (6)
  1. CARBAMAZEPINE (CARBAMAZEPINE) [Suspect]
     Active Substance: CARBAMAZEPINE
     Indication: HEMIPLEGIA
  2. PHENYTOIN. [Concomitant]
     Active Substance: PHENYTOIN
  3. MANNITOL. [Concomitant]
     Active Substance: MANNITOL
  4. DESMOPRESSIN [Concomitant]
     Active Substance: DESMOPRESSIN
  5. DEXAMETHASONE. [Concomitant]
     Active Substance: DEXAMETHASONE
  6. THYROXINE (LEVOTHYROXINE SODIUM) [Concomitant]
     Active Substance: LEVOTHYROXINE

REACTIONS (3)
  - Hyperkalaemia [None]
  - Neuroleptic malignant syndrome [None]
  - Cardiac arrest [None]
